FAERS Safety Report 5802918-1 (Version None)
Quarter: 2008Q3

REPORT INFORMATION
  Report Type: 
  Country: None (occurrence: None)
  Receive Date: 20080703
  Receipt Date: 20041207
  Transmission Date: 20090109
  Serious: No
  Sender: FDA-Public Use
  Company Number: US023573

PATIENT
  Sex: Female

DRUGS (1)
  1. TIAGABINE HCL [Suspect]
     Indication: GENERALISED ANXIETY DISORDER
     Dosage: ORAL
     Route: 048
     Dates: end: 20041205

REACTIONS (3)
  - ABORTION INDUCED [None]
  - DRUG EXPOSURE DURING PREGNANCY [None]
  - ECTOPIC PREGNANCY [None]
